FAERS Safety Report 6055280-6 (Version None)
Quarter: 2009Q1

REPORT INFORMATION
  Report Type: 
  Country: None (occurrence: None)
  Receive Date: 20090123
  Receipt Date: 20090114
  Transmission Date: 20090719
  Serious: Yes (Hospitalization)
  Sender: FDA-Public Use
  Company Number: ADR0172009

PATIENT
  Age: 46 Year
  Sex: Female

DRUGS (8)
  1. CITALOPRAM HYDROBROMIDE [Suspect]
     Indication: DEPRESSION
     Dosage: 20 MG/DAY, ORAL
     Route: 048
  2. FLUCONAZOLE [Concomitant]
  3. DAPSONE [Concomitant]
  4. ACYCLOVIR [Concomitant]
  5. ESOMEPRAZOLE MAGNESIUM [Concomitant]
  6. DEXAMETHASONE [Concomitant]
  7. ZOLPIDEM CR [Concomitant]
  8. LOSARTAN  20MG/HYDROCHLOROTIAZIDE12.5 MG [Concomitant]

REACTIONS (10)
  - AREFLEXIA [None]
  - CONFUSIONAL STATE [None]
  - DELIRIUM [None]
  - DRUG INTERACTION [None]
  - MEMORY IMPAIRMENT [None]
  - PERSEVERATION [None]
  - PETIT MAL EPILEPSY [None]
  - PSYCHOMOTOR RETARDATION [None]
  - SEROTONIN SYNDROME [None]
  - STEM CELL TRANSPLANT [None]
